FAERS Safety Report 10091184 (Version 2)
Quarter: 2014Q2

REPORT INFORMATION
  Report Type: Spontaneous
  Country: US (occurrence: US)
  Receive Date: 20140421
  Receipt Date: 20140421
  Transmission Date: 20141212
  Serious: No
  Sender: FDA-Public Use
  Company Number: US-GILEAD-2012-0061672

PATIENT
  Age: 79 Year
  Sex: Female

DRUGS (2)
  1. LETAIRIS [Suspect]
     Dosage: 5 MG, QD
     Route: 048
  2. LETAIRIS [Suspect]
     Indication: PRODUCT USED FOR UNKNOWN INDICATION
     Dosage: 10 MG, UNK
     Route: 048
     Dates: start: 20120511, end: 20120821

REACTIONS (3)
  - Diarrhoea [Not Recovered/Not Resolved]
  - Drug administration error [None]
  - Abdominal pain upper [Not Recovered/Not Resolved]
